FAERS Safety Report 8927854 (Version 1)
Quarter: 2012Q4

REPORT INFORMATION
  Report Type: 
  Country: GB (occurrence: GB)
  Receive Date: 20121127
  Receipt Date: 20121127
  Transmission Date: 20130627
  Serious: Yes (Other)
  Sender: FDA-Public Use
  Company Number: GB-BRISTOL-MYERS SQUIBB COMPANY-17134719

PATIENT
  Age: 74 Year
  Sex: Male
  Weight: 86.07 kg

DRUGS (3)
  1. PRAVASTATIN SODIUM [Suspect]
     Indication: BLOOD CHOLESTEROL INCREASED
     Route: 048
     Dates: start: 20101011, end: 20121017
  2. QUININE SULFATE [Suspect]
     Indication: MUSCLE SPASMS
     Route: 048
     Dates: end: 20121018
  3. AMLODIPINE [Suspect]
     Indication: HYPERTENSION
     Route: 048
     Dates: start: 20090114

REACTIONS (3)
  - Neck pain [Recovering/Resolving]
  - Product substitution issue [Unknown]
  - Joint swelling [Recovered/Resolved]
